FAERS Safety Report 4932106-2 (Version None)
Quarter: 2006Q1

REPORT INFORMATION
  Report Type: 
  Country: None (occurrence: None)
  Receive Date: 20060303
  Receipt Date: 20060130
  Transmission Date: 20060701
  Serious: Yes (Other)
  Sender: FDA-Public Use
  Company Number: JP-ROCHE-435345

PATIENT
  Age: 52 Year
  Sex: Female

DRUGS (3)
  1. TAMIFLU [Suspect]
     Route: 048
     Dates: start: 20060119, end: 20060121
  2. HUSTAZOL [Concomitant]
     Route: 048
     Dates: start: 20060119, end: 20060122
  3. SYO-SAIKO-TO-KIKYO-SEKKO [Concomitant]
     Route: 048
     Dates: start: 20060119, end: 20060122

REACTIONS (2)
  - DIZZINESS [None]
  - HYPOTHERMIA [None]
